FAERS Safety Report 20440337 (Version 1)
Quarter: 2022Q1

REPORT INFORMATION
  Report Type: Spontaneous
  Country: US (occurrence: None)
  Receive Date: 20220207
  Receipt Date: 20220207
  Transmission Date: 20220424
  Serious: No
  Sender: FDA-Public Use
  Company Number: None

PATIENT
  Sex: Female

DRUGS (1)
  1. VERZENIO [Suspect]
     Active Substance: ABEMACICLIB
     Indication: Polyarthritis
     Dosage: 150 MG TWICE DAILY ORAL?
     Route: 048
     Dates: start: 202201

REACTIONS (2)
  - Diarrhoea [None]
  - Rosacea [None]
